FAERS Safety Report 18981240 (Version 4)
Quarter: 2021Q2

REPORT INFORMATION
  Report Type: Spontaneous
  Country: US (occurrence: US)
  Receive Date: 20210308
  Receipt Date: 20210607
  Transmission Date: 20210717
  Serious: No
  Sender: FDA-Public Use
  Company Number: US-BIOGEN-2019BI00735751

PATIENT
  Age: 36 Year
  Sex: Female

DRUGS (2)
  1. TYSABRI [Suspect]
     Active Substance: NATALIZUMAB
     Route: 065
  2. TYSABRI [Suspect]
     Active Substance: NATALIZUMAB
     Indication: MULTIPLE SCLEROSIS
     Route: 065
     Dates: start: 20180323

REACTIONS (5)
  - Hypoaesthesia [Unknown]
  - Pain [Not Recovered/Not Resolved]
  - Paraesthesia [Unknown]
  - Prescribed underdose [Not Recovered/Not Resolved]
  - Sensory disturbance [Unknown]

NARRATIVE: CASE EVENT DATE: 20180323
